FAERS Safety Report 4790436-1 (Version None)
Quarter: 2005Q4

REPORT INFORMATION
  Report Type: 
  Country: None (occurrence: None)
  Receive Date: 20051005
  Receipt Date: 20050916
  Transmission Date: 20060501
  Serious: Yes (Hospitalization, Other)
  Sender: FDA-Public Use
  Company Number: USA0509108363

PATIENT
  Age: 83 Year
  Sex: Female
  Weight: 81 kg

DRUGS (2)
  1. HUMULIN L [Suspect]
  2. INSULIN NOVOLIN [Concomitant]

REACTIONS (3)
  - BLOOD GLUCOSE DECREASED [None]
  - CYSTITIS [None]
  - MYOCARDIAL INFARCTION [None]
